FAERS Safety Report 16461841 (Version 1)
Quarter: 2019Q2

REPORT INFORMATION
  Report Type: Report from Study
  Country: CA (occurrence: CA)
  Receive Date: 20190621
  Receipt Date: 20190621
  Transmission Date: 20190711
  Serious: Yes (Death, Other)
  Sender: FDA-Public Use
  Company Number: CA-BRISTOL-MYERS SQUIBB COMPANY-BMS-2019-034259

PATIENT
  Age: 63 Year
  Sex: Male

DRUGS (2)
  1. NIVOLUMAB [Suspect]
     Active Substance: NIVOLUMAB
     Indication: CHOLANGIOCARCINOMA
     Dosage: UNK, Q2WK
     Route: 042
     Dates: start: 20190321
  2. ZESTRIL [Concomitant]
     Active Substance: LISINOPRIL
     Indication: PRODUCT USED FOR UNKNOWN INDICATION
     Dosage: UNK
     Route: 065

REACTIONS (34)
  - Death [Fatal]
  - Localised oedema [Unknown]
  - Somnolence [Unknown]
  - Decreased appetite [Unknown]
  - Frequent bowel movements [Unknown]
  - Epistaxis [Unknown]
  - Blood alkaline phosphatase increased [Unknown]
  - Blood bilirubin increased [Unknown]
  - Blood albumin decreased [Unknown]
  - Product use in unapproved indication [Unknown]
  - Red blood cell count decreased [Unknown]
  - Lymphocyte count decreased [Unknown]
  - Blood urea increased [Unknown]
  - Blood magnesium decreased [Unknown]
  - Blood phosphorus decreased [Unknown]
  - Weight increased [Unknown]
  - Pain [Unknown]
  - Oedema peripheral [Unknown]
  - Neutrophil count increased [Unknown]
  - Haemoglobin decreased [Unknown]
  - Platelet count decreased [Unknown]
  - Gamma-glutamyltransferase increased [Unknown]
  - Dry mouth [Unknown]
  - Monocyte count increased [Unknown]
  - Blood sodium decreased [Unknown]
  - Nausea [Unknown]
  - Blood calcium increased [Unknown]
  - Blood thyroid stimulating hormone increased [Unknown]
  - Blood bilirubin unconjugated increased [Unknown]
  - White blood cell count decreased [Unknown]
  - Haematocrit decreased [Unknown]
  - Bilirubin conjugated increased [Unknown]
  - Fatigue [Unknown]
  - Blood lactate dehydrogenase increased [Unknown]

NARRATIVE: CASE EVENT DATE: 20190403
